FAERS Safety Report 4551014-2 (Version None)
Quarter: 2005Q1

REPORT INFORMATION
  Report Type: 
  Country: None (occurrence: None)
  Receive Date: 20050113
  Receipt Date: 20040827
  Transmission Date: 20050727
  Serious: No
  Sender: FDA-Public Use
  Company Number: US-BRISTOL-MYERS SQUIBB COMPANY-12686135

PATIENT
  Sex: Female

DRUGS (1)
  1. CARDIOLITE [Suspect]
     Indication: EXERCISE TEST
     Dates: start: 20040625

REACTIONS (6)
  - ABDOMINAL PAIN UPPER [None]
  - ABNORMAL FAECES [None]
  - DYSGEUSIA [None]
  - FLATULENCE [None]
  - GASTROINTESTINAL PAIN [None]
  - SENSATION OF FOREIGN BODY [None]
